FAERS Safety Report 9269768 (Version 1)
Quarter: 2013Q2

REPORT INFORMATION
  Report Type: Spontaneous
  Country: US (occurrence: None)
  Receive Date: 20130503
  Receipt Date: 20130503
  Transmission Date: 20140414
  Serious: Yes (Hospitalization)
  Sender: FDA-Public Use
  Company Number: None

PATIENT
  Age: 65 Year
  Sex: Male
  Weight: 46.8 kg

DRUGS (1)
  1. WARFARIN [Suspect]
     Dates: start: 20130401, end: 20130418

REACTIONS (4)
  - Gastric haemorrhage [None]
  - International normalised ratio increased [None]
  - Melaena [None]
  - Haematemesis [None]
